FAERS Safety Report 23094570 (Version 6)
Quarter: 2024Q3

REPORT INFORMATION
  Report Type: Report from Study
  Country: US (occurrence: US)
  Receive Date: 20231023
  Receipt Date: 20240818
  Transmission Date: 20241017
  Serious: Yes (Other)
  Sender: NOVARTIS
  Company Number: US-002147023-NVSC2023US224578

PATIENT
  Age: 70 Year
  Sex: Female

DRUGS (1)
  1. KESIMPTA [Suspect]
     Active Substance: OFATUMUMAB
     Indication: Multiple sclerosis
     Dosage: 20 MG, QMO, (ONCE A MONTH)
     Route: 058

REACTIONS (9)
  - Hip fracture [Unknown]
  - Pain in extremity [Recovering/Resolving]
  - Injection site bruising [Unknown]
  - Wrong technique in device usage process [Recovering/Resolving]
  - Injection site discharge [Recovering/Resolving]
  - Sinus congestion [Not Recovered/Not Resolved]
  - Nasopharyngitis [Unknown]
  - Sciatic nerve neuropathy [Unknown]
  - Asthenia [Unknown]

NARRATIVE: CASE EVENT DATE: 20240125
